FAERS Safety Report 7911838-8 (Version None)
Quarter: 2011Q4

REPORT INFORMATION
  Report Type: 
  Country: None (occurrence: None)
  Receive Date: 20111114
  Receipt Date: 20111104
  Transmission Date: 20120403
  Serious: Yes (Hospitalization, Other)
  Sender: FDA-Public Use
  Company Number: FR-JNJFOC-20111005510

PATIENT
  Age: 80 Year
  Sex: Female

DRUGS (8)
  1. ACETAMINOPHEN [Concomitant]
  2. ZOLPIDEM TARTRATE [Concomitant]
  3. OXYCODONE HCL [Concomitant]
  4. XARELTO [Suspect]
     Indication: KNEE ARTHROPLASTY
     Route: 048
     Dates: start: 20110929, end: 20111011
  5. XARELTO [Suspect]
     Indication: THROMBOSIS PROPHYLAXIS
     Route: 048
     Dates: start: 20110929, end: 20111011
  6. ALDACTAZIDE [Concomitant]
  7. CLONAZEPAM [Concomitant]
  8. RABEPRAZOLE SODIUM [Concomitant]

REACTIONS (2)
  - VENOUS THROMBOSIS LIMB [None]
  - SUBCUTANEOUS HAEMATOMA [None]
